FAERS Safety Report 8593675 (Version 3)
Quarter: 2014Q1

REPORT INFORMATION
  Report Type: Spontaneous
  Country: US (occurrence: US)
  Receive Date: 20120604
  Receipt Date: 20140108
  Transmission Date: 20141002
  Serious: Yes (Hospitalization, Other)
  Sender: FDA-Public Use
  Company Number: US-ASTRAZENECA-2012SE35026

PATIENT
  Age: 56 Year
  Sex: Male
  Weight: 117.9 kg

DRUGS (16)
  1. NEXIUM [Suspect]
     Indication: ABDOMINAL DISCOMFORT
     Dosage: ONE TIME
     Route: 048
     Dates: start: 2003, end: 2011
  2. NEXIUM [Suspect]
     Indication: ABDOMINAL DISCOMFORT
     Route: 048
     Dates: start: 20080530
  3. PRILOSEC [Suspect]
     Route: 048
  4. PRILOSEC [Suspect]
     Route: 048
     Dates: start: 20100723
  5. ROLAIDS [Concomitant]
  6. ALKA-SELTZER [Concomitant]
  7. MYLANTA [Concomitant]
  8. MILK OF MAGNESIA [Concomitant]
     Dosage: PER DIRECTION ON LABEL
  9. HYDROCODONE/APAP [Concomitant]
     Dosage: 7.5-500 MG
     Dates: start: 20080103
  10. METRONIDAZOLE [Concomitant]
     Dates: start: 20080322
  11. LEVOTHYROXINE [Concomitant]
     Dates: start: 20080530
  12. FEXOFENADINE [Concomitant]
     Dates: start: 20090210
  13. LORATADINE [Concomitant]
     Dates: start: 20090210
  14. LOVASTATIN [Concomitant]
     Dates: start: 20090302
  15. LISINOPRIL [Concomitant]
     Dates: start: 20100312
  16. HYDROCHLOROTHIAZIDE [Concomitant]
     Dates: start: 20101013

REACTIONS (13)
  - Sweat gland disorder [Unknown]
  - Skin cancer [Unknown]
  - Osteoporosis [Unknown]
  - Multiple fractures [Unknown]
  - Abdominal distension [Unknown]
  - Abdominal pain upper [Unknown]
  - Constipation [Unknown]
  - Osteogenesis imperfecta [Unknown]
  - Fracture [Unknown]
  - Arthritis [Unknown]
  - Cardiovascular disorder [Unknown]
  - Glaucoma [Unknown]
  - Depression [Unknown]
